FAERS Safety Report 7446131-3 (Version None)
Quarter: 2011Q2

REPORT INFORMATION
  Report Type: 
  Country: None (occurrence: None)
  Receive Date: 20110429
  Receipt Date: 20110419
  Transmission Date: 20111010
  Serious: Yes (Hospitalization)
  Sender: FDA-Public Use
  Company Number: B0614653A

PATIENT
  Sex: Female
  Weight: 66.6 kg

DRUGS (7)
  1. PAZOPANIB [Suspect]
     Indication: NEOPLASM
     Dosage: 800MG PER DAY
     Dates: start: 20091124
  2. EPIRUBICIN HYDROCHLORIDE [Suspect]
     Indication: NEOPLASM
     Dosage: 90MGM2 PER DAY
     Dates: start: 20091111
  3. IMPORTAL [Concomitant]
     Dosage: 10ML AS REQUIRED
     Route: 048
  4. DAFALGAN [Concomitant]
     Dosage: 500MG AS REQUIRED
     Route: 048
  5. ALDACTONE [Concomitant]
     Indication: ASCITES
     Dosage: 50MG FOUR TIMES PER DAY
     Route: 048
     Dates: start: 20091105
  6. FORTECORTIN [Concomitant]
     Dosage: 4MG FOUR TIMES PER DAY
     Route: 048
     Dates: start: 20091202, end: 20091204
  7. EMEND [Concomitant]
     Dosage: 80MG FOUR TIMES PER DAY
     Route: 048
     Dates: start: 20091202, end: 20091204

REACTIONS (5)
  - ASCITES [None]
  - INFECTION [None]
  - PERITONITIS BACTERIAL [None]
  - DYSPNOEA [None]
  - PYREXIA [None]
